FAERS Safety Report 14321161 (Version 1)
Quarter: 2017Q4

REPORT INFORMATION
  Report Type: Report from Study
  Country: US (occurrence: US)
  Receive Date: 20171223
  Receipt Date: 20171223
  Transmission Date: 20180321
  Serious: No
  Sender: FDA-Public Use
  Company Number: PHEH2017US041421

PATIENT
  Sex: Male

DRUGS (3)
  1. ILARIS [Suspect]
     Active Substance: CANAKINUMAB
     Indication: PRODUCT USED FOR UNKNOWN INDICATION
     Route: 065
  2. ILARIS [Suspect]
     Active Substance: CANAKINUMAB
     Dosage: UNK; EVERY 5 WEEKS
     Route: 065
     Dates: start: 20171209
  3. ILARIS [Suspect]
     Active Substance: CANAKINUMAB
     Dosage: UNK; EVERY 5 WEEKS
     Route: 065
     Dates: start: 20171111

REACTIONS (1)
  - Inappropriate schedule of drug administration [Unknown]
